FAERS Safety Report 6893379-2 (Version None)
Quarter: 2010Q3

REPORT INFORMATION
  Report Type: 
  Country: None (occurrence: None)
  Receive Date: 20100731
  Receipt Date: 20090826
  Transmission Date: 20110219
  Serious: No
  Sender: FDA-Public Use
  Company Number: US-PFIZER INC-2009259933

PATIENT
  Sex: Male

DRUGS (2)
  1. LIPITOR [Suspect]
     Indication: MYOCARDIAL INFARCTION
     Dosage: UNK
     Route: 048
     Dates: start: 20080201, end: 20080313
  2. PLAVIX [Concomitant]
     Dosage: UNK

REACTIONS (2)
  - MUSCULAR WEAKNESS [None]
  - MYALGIA [None]
